FAERS Safety Report 8619624-0 (Version None)
Quarter: 2012Q3

REPORT INFORMATION
  Report Type: 
  Country: None (occurrence: None)
  Receive Date: 20120810
  Receipt Date: 20120802
  Transmission Date: 20120928
  Serious: Yes (Death)
  Sender: FDA-Public Use
  Company Number: 20120020

PATIENT
  Age: 54 Year
  Sex: Male

DRUGS (4)
  1. HYDROCODONE BITARTRATE [Concomitant]
  2. FENTANYL [Concomitant]
  3. SUBSYS (FENTANYL SUBLINGUAL SPRAY) 100MCG, INSYS THERAPEUTICS [Suspect]
     Indication: LUNG NEOPLASM MALIGNANT
     Dosage: 100MCG, SL
     Route: 060
     Dates: start: 20120618, end: 20120620
  4. LIQUID MORPHINE [Concomitant]

REACTIONS (3)
  - APPLICATION SITE PAIN [None]
  - NAUSEA [None]
  - OEDEMA MOUTH [None]
